FAERS Safety Report 6412288-6 (Version None)
Quarter: 2009Q4

REPORT INFORMATION
  Report Type: 
  Country: None (occurrence: None)
  Receive Date: 20091020
  Receipt Date: 20091007
  Transmission Date: 20100525
  Serious: Yes (Other)
  Sender: FDA-Public Use
  Company Number: 2009AC000149

PATIENT
  Age: 56 Year
  Sex: Male

DRUGS (9)
  1. DIGOXIN [Suspect]
     Dosage: 0.125 MG;UNKNOWN;PO
     Route: 050
     Dates: start: 20070801, end: 20080401
  2. ASACOL [Concomitant]
  3. CLOTRIMAZOLE [Concomitant]
  4. LEVITRA [Concomitant]
  5. PAROXETINE HCL [Concomitant]
  6. METHYLPREDNISOLONE 4MG TAB [Concomitant]
  7. CLOTRIMAZOLE/BETHAMETH [Concomitant]
  8. LORAZEPAM [Concomitant]
  9. PAROXETINE [Concomitant]

REACTIONS (2)
  - MULTIPLE INJURIES [None]
  - OVERDOSE [None]
